FAERS Safety Report 7912549-5 (Version None)
Quarter: 2011Q4

REPORT INFORMATION
  Report Type: 
  Country: None (occurrence: None)
  Receive Date: 20111114
  Receipt Date: 20111109
  Transmission Date: 20120403
  Serious: No
  Sender: FDA-Public Use
  Company Number: US-PFIZER INC-2011098380

PATIENT
  Sex: Female
  Weight: 56.689 kg

DRUGS (6)
  1. GLIPIZIDE [Concomitant]
     Indication: DIABETES MELLITUS
     Dosage: UNK
  2. NORVASC [Suspect]
     Dosage: 2 MG, DAILY
     Dates: end: 20060101
  3. HYDROCHLOROTHIAZIDE [Concomitant]
     Dosage: UNK
  4. NORVASC [Suspect]
     Indication: HYPERTENSION
     Dosage: 5 MG, 1X/DAY
     Route: 048
     Dates: start: 20020601
  5. CLONIDINE [Suspect]
     Dosage: UNK
  6. GLYBURIDE [Concomitant]
     Indication: DIABETES MELLITUS
     Dosage: UNK

REACTIONS (4)
  - CHEST PAIN [None]
  - ABDOMINAL DISTENSION [None]
  - HEADACHE [None]
  - SOMNOLENCE [None]
